FAERS Safety Report 24637418 (Version 1)
Quarter: 2024Q4

REPORT INFORMATION
  Report Type: Report from Study
  Country: US (occurrence: US)
  Receive Date: 20241119
  Receipt Date: 20241119
  Transmission Date: 20250114
  Serious: No
  Sender: AGIOS PHARMACEUTICALS
  Company Number: US-AGIOS-2411US03951

PATIENT
  Sex: Female

DRUGS (2)
  1. MITAPIVAT [Suspect]
     Active Substance: MITAPIVAT
     Indication: Pyruvate kinase deficiency anaemia
     Dosage: 20 MILLIGRAM
     Route: 065
     Dates: start: 20231012
  2. ADVIL [Concomitant]
     Active Substance: IBUPROFEN
     Indication: Bone pain
     Dosage: PRN
     Route: 065

REACTIONS (2)
  - Osteoarthritis [Unknown]
  - Bone pain [Unknown]
